FAERS Safety Report 21410184 (Version 2)
Quarter: 2022Q4

REPORT INFORMATION
  Report Type: Report from Study
  Country: MX (occurrence: MX)
  Receive Date: 20221005
  Receipt Date: 20221117
  Transmission Date: 20230113
  Serious: Yes (Other)
  Sender: FDA-Public Use
  Company Number: MX-NOVARTISPH-NVSC2022MX224678

PATIENT
  Sex: Female
  Weight: 60 kg

DRUGS (2)
  1. INDACATEROL MALEATE [Suspect]
     Active Substance: INDACATEROL MALEATE
     Indication: Dyspnoea
     Dosage: 150 UG (AT NIGHT, STARTED APPROXIMATELY 2 YEARS AGO)
     Route: 048
     Dates: start: 2020
  2. INDACATEROL MALEATE [Suspect]
     Active Substance: INDACATEROL MALEATE
     Dosage: 150 UG

REACTIONS (9)
  - Scoliosis [Not Recovered/Not Resolved]
  - Lung disorder [Not Recovered/Not Resolved]
  - Dyspnoea [Unknown]
  - Body height decreased [Not Recovered/Not Resolved]
  - Kyphosis [Not Recovered/Not Resolved]
  - Spinal pain [Not Recovered/Not Resolved]
  - Weight decreased [Unknown]
  - Incorrect route of product administration [Recovered/Resolved]
  - Product use in unapproved indication [Unknown]

NARRATIVE: CASE EVENT DATE: 20210101
